FAERS Safety Report 6474987-X (Version None)
Quarter: 2009Q4

REPORT INFORMATION
  Report Type: 
  Country: None (occurrence: None)
  Receive Date: 20091204
  Receipt Date: 20090608
  Transmission Date: 20100525
  Serious: Yes (Hospitalization, Other)
  Sender: FDA-Public Use
  Company Number: US-ELI_LILLY_AND_COMPANY-US200902007549

PATIENT
  Sex: Female
  Weight: 108.84 kg

DRUGS (21)
  1. BYETTA [Suspect]
     Indication: TYPE 2 DIABETES MELLITUS
     Dosage: 5 UG, 2/D
     Route: 058
     Dates: start: 20080710, end: 20081118
  2. BYETTA [Suspect]
     Dosage: 10 UG, 2/D
     Route: 058
     Dates: start: 20090406
  3. METFORMIN HCL [Concomitant]
     Indication: DIABETES MELLITUS
     Dosage: 1000 MG, 2/D
     Route: 065
  4. LANTUS [Concomitant]
     Dosage: 46 U, EACH MORNING
     Route: 065
     Dates: start: 20081101
  5. LANTUS [Concomitant]
     Dosage: 10 U, EACH EVENING
     Route: 065
  6. AMARYL [Concomitant]
     Dosage: 4 MG, DAILY (1/D)
     Route: 065
  7. DILTIAZEM [Concomitant]
     Dosage: UNK, UNKNOWN
     Route: 065
  8. ZETIA [Concomitant]
     Dosage: UNK, UNKNOWN
     Route: 065
  9. TRICOR [Concomitant]
     Dosage: UNK, UNKNOWN
     Route: 065
  10. TOPROL-XL [Concomitant]
     Dosage: UNK, UNKNOWN
     Route: 065
  11. CRESTOR [Concomitant]
     Dosage: UNK, UNKNOWN
     Route: 065
  12. CELEXA [Concomitant]
     Dosage: UNK, UNKNOWN
     Route: 065
  13. LASIX [Concomitant]
     Dosage: UNK, UNKNOWN
     Route: 065
  14. CLARINEX [Concomitant]
     Dosage: UNK, UNKNOWN
     Route: 065
  15. LEVOXYL [Concomitant]
     Dosage: UNK, UNKNOWN
     Route: 065
  16. POTASSIUM [Concomitant]
     Dosage: UNK, UNKNOWN
     Route: 065
  17. SPIRONOLACTONE [Concomitant]
     Dosage: UNK, UNKNOWN
     Route: 065
  18. PREVACID [Concomitant]
     Dosage: UNK, UNKNOWN
     Route: 065
  19. ADVAIR DISKUS 100/50 [Concomitant]
     Dosage: UNK, UNKNOWN
     Route: 065
  20. ASPIRIN [Concomitant]
     Dosage: UNK, DAILY (1/D)
     Route: 065
  21. AVAPRO [Concomitant]
     Dosage: UNK, UNKNOWN
     Route: 065

REACTIONS (5)
  - BLOOD CALCIUM DECREASED [None]
  - BLOOD TRIGLYCERIDES INCREASED [None]
  - INTESTINAL OBSTRUCTION [None]
  - OFF LABEL USE [None]
  - PANCREATITIS [None]
